FAERS Safety Report 6256990-8 (Version None)
Quarter: 2009Q3

REPORT INFORMATION
  Report Type: 
  Country: None (occurrence: None)
  Receive Date: 20090706
  Receipt Date: 20090622
  Transmission Date: 20100115
  Serious: Yes (Hospitalization)
  Sender: FDA-Public Use
  Company Number: A0757543A

PATIENT
  Age: 80 Year
  Sex: Male
  Weight: 88.6 kg

DRUGS (16)
  1. AVANDIA [Suspect]
     Dosage: 4MG PER DAY
     Route: 048
     Dates: start: 20070301
  2. ACTOS [Suspect]
     Dosage: 15MG PER DAY
     Dates: start: 20070829
  3. FLOMAX [Concomitant]
     Dosage: .4MG PER DAY
  4. ROCALTROL [Concomitant]
     Dosage: .25MCG PER DAY
  5. TOPROL-XL [Concomitant]
     Dosage: 200MG PER DAY
  6. DARVOCET [Concomitant]
  7. LASIX [Concomitant]
     Dosage: 40MG PER DAY
  8. ALTACE [Concomitant]
  9. NORVASC [Concomitant]
     Dosage: 5MG PER DAY
  10. ACIPHEX [Concomitant]
     Dosage: 20MG PER DAY
  11. ASMANEX TWISTHALER [Concomitant]
     Dosage: 220MCG PER DAY
  12. ATROVENT [Concomitant]
     Dosage: .2MGML FOUR TIMES PER DAY
  13. ALBUTEROL [Concomitant]
     Dosage: .83MGML FOUR TIMES PER DAY
  14. NITROGLYCERIN [Concomitant]
     Dosage: .4MG AS REQUIRED
  15. COMBIVENT [Concomitant]
     Dosage: 118MCG FOUR TIMES PER DAY
  16. NASACORT [Concomitant]

REACTIONS (2)
  - CHEST PAIN [None]
  - WEIGHT INCREASED [None]
